FAERS Safety Report 23958202 (Version 2)
Quarter: 2025Q1

REPORT INFORMATION
  Report Type: Spontaneous
  Country: MY (occurrence: MY)
  Receive Date: 20240610
  Receipt Date: 20250115
  Transmission Date: 20250408
  Serious: Yes (Death, Other)
  Sender: NOVARTIS
  Company Number: MY-002147023-NVSC2024MY121290

PATIENT
  Age: 49 Year
  Sex: Female

DRUGS (4)
  1. RIBOCICLIB [Suspect]
     Active Substance: RIBOCICLIB
     Indication: Hormone receptor positive HER2 negative breast cancer
     Dosage: 600 MG, QD (3 WEEKS ON/1 WEEK OFF)
     Route: 065
     Dates: start: 20190306
  2. RIBOCICLIB [Suspect]
     Active Substance: RIBOCICLIB
     Indication: Breast cancer metastatic
  3. LETROZOLE [Suspect]
     Active Substance: LETROZOLE
     Indication: Hormone receptor positive HER2 negative breast cancer
     Dosage: 2.5 MG, QD
     Route: 065
     Dates: start: 20190306
  4. VITAMIN C [Concomitant]
     Active Substance: ASCORBIC ACID
     Indication: Product used for unknown indication
     Route: 065

REACTIONS (8)
  - Breast cancer metastatic [Fatal]
  - Malignant neoplasm progression [Fatal]
  - Hypophosphataemia [Unknown]
  - Gamma-glutamyltransferase increased [Recovered/Resolved]
  - Dry skin [Unknown]
  - Alopecia [Unknown]
  - Vomiting [Unknown]
  - Weight increased [Unknown]
